FAERS Safety Report 19418720 (Version 1)
Quarter: 2021Q2

REPORT INFORMATION
  Report Type: Spontaneous
  Country: IT (occurrence: IT)
  Receive Date: 20210615
  Receipt Date: 20210615
  Transmission Date: 20210717
  Serious: Yes (Life-Threatening, Hospitalization, Other)
  Sender: FDA-Public Use
  Company Number: IT-LUPIN PHARMACEUTICALS INC.-2021-09441

PATIENT
  Age: 55 Year
  Sex: Female

DRUGS (8)
  1. PREGABALIN. [Suspect]
     Active Substance: PREGABALIN
     Indication: PAIN
     Dosage: UNK
     Route: 065
  2. ACETAMINOPHEN. [Interacting]
     Active Substance: ACETAMINOPHEN
     Indication: PAIN
     Dosage: UNK
     Route: 048
  3. ACETAMINOPHEN;CODEINE [Interacting]
     Active Substance: ACETAMINOPHEN\CODEINE PHOSPHATE
     Indication: PAIN
     Dosage: UNK
     Route: 048
  4. OXYCODONE HCL / NALOXONE HCL [Interacting]
     Active Substance: NALOXONE HYDROCHLORIDE\OXYCODONE HYDROCHLORIDE
     Indication: PAIN
     Dosage: UNK
     Route: 065
  5. BROMAZEPAM [Interacting]
     Active Substance: BROMAZEPAM
     Indication: PAIN
     Dosage: UNK
     Route: 048
  6. TRAMADOL. [Suspect]
     Active Substance: TRAMADOL
     Indication: PAIN
     Dosage: UNK
     Route: 065
  7. CARBAMAZEPINE. [Suspect]
     Active Substance: CARBAMAZEPINE
     Indication: PAIN
     Dosage: UNK
     Route: 048
  8. TRAZODONE [Concomitant]
     Active Substance: TRAZODONE HYDROCHLORIDE
     Indication: PRODUCT USED FOR UNKNOWN INDICATION
     Dosage: UNK
     Route: 048

REACTIONS (14)
  - Atrial fibrillation [Recovered/Resolved]
  - Bradypnoea [Unknown]
  - Mydriasis [Unknown]
  - Hepatitis acute [Recovered/Resolved]
  - Coma [Unknown]
  - Bradycardia [Unknown]
  - Hypotension [Recovered/Resolved]
  - Drug interaction [Unknown]
  - Lactic acidosis [Unknown]
  - Hypokalaemia [Unknown]
  - Hypothermia [Recovered/Resolved]
  - Overdose [Unknown]
  - Loss of consciousness [Unknown]
  - Drug ineffective [Unknown]
